FAERS Safety Report 8539390-7 (Version None)
Quarter: 2012Q3

REPORT INFORMATION
  Report Type: 
  Country: None (occurrence: None)
  Receive Date: 20120726
  Receipt Date: 20120717
  Transmission Date: 20120928
  Serious: Yes (Other)
  Sender: FDA-Public Use
  Company Number: GB-JNJFOC-20120300084

PATIENT
  Age: 41 Year
  Sex: Female
  Weight: 61 kg

DRUGS (5)
  1. ASCORBIC ACID [Concomitant]
     Route: 048
  2. ZINC SULFATE [Concomitant]
     Route: 048
  3. STELARA [Suspect]
     Indication: PRODUCT USED FOR UNKNOWN INDICATION
     Route: 058
  4. FOLIC ACID [Concomitant]
     Route: 048
  5. FERROUS SULFATE TAB [Concomitant]
     Route: 048

REACTIONS (2)
  - MATERNAL EXPOSURE DURING PREGNANCY [None]
  - CARDIAC MURMUR [None]
